FAERS Safety Report 10629193 (Version 2)
Quarter: 2014Q4

REPORT INFORMATION
  Report Type: Spontaneous
  Country: US (occurrence: US)
  Receive Date: 20141205
  Receipt Date: 20141205
  Transmission Date: 20150529
  Serious: No
  Sender: FDA-Public Use
  Company Number: US-BRISTOL-MYERS SQUIBB COMPANY-21370838

PATIENT
  Age: 68 Year
  Sex: Female
  Weight: 76.19 kg

DRUGS (1)
  1. BYETTA [Suspect]
     Active Substance: EXENATIDE
     Dosage: ONGOING
     Route: 058
     Dates: start: 201407

REACTIONS (3)
  - Blood glucose decreased [Not Recovered/Not Resolved]
  - Flushing [Unknown]
  - Asthenia [Unknown]

NARRATIVE: CASE EVENT DATE: 2014
